FAERS Safety Report 4371517-3 (Version None)
Quarter: 2004Q2

REPORT INFORMATION
  Report Type: 
  Country: None (occurrence: None)
  Receive Date: 20040602
  Receipt Date: 20040525
  Transmission Date: 20050107
  Serious: No
  Sender: FDA-Public Use
  Company Number: 2004UW11013

PATIENT
  Age: 47 Year
  Sex: Male

DRUGS (1)
  1. ATACAND [Suspect]
     Indication: BLOOD PRESSURE

REACTIONS (1)
  - RHABDOMYOLYSIS [None]
